FAERS Safety Report 12519920 (Version 1)
Quarter: 2016Q3

REPORT INFORMATION
  Report Type: Spontaneous
  Country: BR (occurrence: BR)
  Receive Date: 20160701
  Receipt Date: 20160701
  Transmission Date: 20161109
  Serious: Yes (Other)
  Sender: FDA-Public Use
  Company Number: BR-AMGEN-BRACT2011008498

PATIENT
  Age: 49 Year
  Sex: Female
  Weight: 62 kg

DRUGS (6)
  1. METHOTREXATE. [Concomitant]
     Active Substance: METHOTREXATE
     Dosage: 2 TABLETS WEEKLY
  2. NATIFA PRO [Concomitant]
     Dosage: [ESTRADIOL 1MG]/ [NORETHISTERONE ACETATE 0.5MG] 1X/DAY
  3. ZETRON                             /00700502/ [Concomitant]
     Dosage: 150 MG, 1X/DAY
  4. ENBREL [Suspect]
     Active Substance: ETANERCEPT
     Indication: PSORIASIS
     Dosage: 25 MG, 2X/WEEK
     Route: 058
     Dates: start: 20110120
  5. NATIFA PRO [Concomitant]
     Dosage: 1 DF, QD
  6. METHOTREXATE. [Concomitant]
     Active Substance: METHOTREXATE
     Dosage: 2 TABLETS WEEKLY

REACTIONS (4)
  - Feeling hot [Unknown]
  - Drug ineffective [Unknown]
  - Peripheral swelling [Unknown]
  - Erythema [Unknown]

NARRATIVE: CASE EVENT DATE: 2011
